FAERS Safety Report 23392577 (Version 2)
Quarter: 2024Q1

REPORT INFORMATION
  Report Type: Spontaneous
  Country: JP (occurrence: JP)
  Receive Date: 20240111
  Receipt Date: 20240314
  Transmission Date: 20240410
  Serious: Yes (Other)
  Sender: FDA-Public Use
  Company Number: JP-TEVA-VS-3141143

PATIENT
  Age: 13 Year
  Sex: Male

DRUGS (6)
  1. MONTELUKAST [Suspect]
     Active Substance: MONTELUKAST SODIUM
     Indication: Gastroenteritis eosinophilic
     Route: 048
  2. PREDNISOLONE [Suspect]
     Active Substance: PREDNISOLONE
     Indication: Gastroenteritis eosinophilic
     Dosage: 1.5 MG/KG/DAY
     Route: 042
  3. PREDNISOLONE [Suspect]
     Active Substance: PREDNISOLONE
     Indication: Gastroenteritis eosinophilic
     Dosage: 0.7 MG/KG/DAY
     Route: 048
  4. ESOMEPRAZOLE [Suspect]
     Active Substance: ESOMEPRAZOLE
     Indication: Gastroenteritis eosinophilic
     Route: 065
  5. DUPILUMAB [Suspect]
     Active Substance: DUPILUMAB
     Indication: Gastroenteritis eosinophilic
     Route: 058
  6. DUPILUMAB [Suspect]
     Active Substance: DUPILUMAB
     Indication: Gastroenteritis eosinophilic
     Route: 058

REACTIONS (2)
  - Glaucoma [Unknown]
  - Off label use [Unknown]
